FAERS Safety Report 5582094-3 (Version None)
Quarter: 2007Q4

REPORT INFORMATION
  Report Type: 
  Country: None (occurrence: None)
  Receive Date: 20071130
  Receipt Date: 20070912
  Transmission Date: 20080405
  Serious: No
  Sender: FDA-Public Use
  Company Number: US200708003073

PATIENT
  Age: 73 Year
  Sex: Male
  Weight: 125.2 kg

DRUGS (13)
  1. BYETTA [Suspect]
     Indication: TYPE 2 DIABETES MELLITUS
     Dosage: 5 UG, 2/D,  10 UG, 2/D, SUBCUTANEOUS
     Route: 058
     Dates: start: 20061201, end: 20070101
  2. BYETTA [Suspect]
     Indication: TYPE 2 DIABETES MELLITUS
     Dosage: 5 UG, 2/D,  10 UG, 2/D, SUBCUTANEOUS
     Route: 058
     Dates: start: 20070101
  3. METFORMIN HCL [Concomitant]
  4. AMARYL [Concomitant]
  5. ACTOS [Concomitant]
  6. AVANDIA [Concomitant]
  7. ALLOPURINOL [Concomitant]
  8. DIOVAN (HYDROCHLOROTHIAZIDE, VALSARTAN) [Concomitant]
  9. VYTORIN [Concomitant]
  10. SOTALOL HCL [Concomitant]
  11. WARFARIN SODIUM [Concomitant]
  12. NORVASC (AMLODIPNE) [Concomitant]
  13. LANOXIN [Concomitant]

REACTIONS (4)
  - BOWEL MOVEMENT IRREGULARITY [None]
  - CONSTIPATION [None]
  - DECREASED APPETITE [None]
  - WEIGHT DECREASED [None]
